FAERS Safety Report 9025937 (Version 2)
Quarter: 2013Q1

REPORT INFORMATION
  Report Type: Spontaneous
  Country: US (occurrence: None)
  Receive Date: 20130104
  Receipt Date: 20130122
  Transmission Date: 20140127
  Serious: Yes (Death)
  Sender: FDA-Public Use
  Company Number: 2012-1602

PATIENT
  Age: 46 Year
  Sex: Male
  Weight: 64.8 kg

DRUGS (8)
  1. KYPROLIS [Suspect]
     Indication: PLASMA CELL MYELOMA
     Route: 042
     Dates: start: 20120824, end: 20120825
  2. CYCLOPHOSPHAMIDE(CYCLOPHOSPHAMIDE) (CYCLOPHOSPHAMIDE) [Concomitant]
  3. VELCADE(BORTEZOMIB) (BORTEZOMIB) [Concomitant]
  4. DEXAMETHASONE(DEXAMETHASONE) (DEXAMETHASONE) [Concomitant]
  5. C-CSF(GRANULOCYTE COLONY STIMULATING FACTOR) (GRANULOCYTE COLONY STIMULATING FACTOR) [Concomitant]
  6. OXYCODONE(OXYCODONE) (OXYCODONE) [Concomitant]
  7. CELEXA(CITALOPRAM HYDROBROMIDE) (CITALOPRAM HYDROBROMIDE) [Concomitant]
  8. SEROQUEL (QUETIAPINE FUMARATE) (QUETIAPINE FUMARATE) [Concomitant]

REACTIONS (1)
  - Death [None]
